FAERS Safety Report 4312178-9 (Version None)
Quarter: 2004Q1

REPORT INFORMATION
  Report Type: 
  Country: None (occurrence: None)
  Receive Date: 20040304
  Receipt Date: 20040304
  Transmission Date: 20041129
  Serious: No
  Sender: FDA-Public Use
  Company Number: None

PATIENT
  Age: 44 Year
  Sex: Male
  Weight: 92.5338 kg

DRUGS (3)
  1. RITUXAN [Suspect]
     Indication: CHRONIC LYMPHOCYTIC LEUKAEMIA
     Dosage: 806 MG X1 INTRAVENOUS
     Route: 042
     Dates: start: 20040301, end: 20040301
  2. FLUDARABINE PHOSPHATE [Concomitant]
  3. CYTOXAN [Concomitant]

REACTIONS (5)
  - CHILLS [None]
  - DYSPNOEA [None]
  - FLUSHING [None]
  - OXYGEN SATURATION DECREASED [None]
  - SWELLING FACE [None]
